FAERS Safety Report 8053155-4 (Version None)
Quarter: 2011Q4

REPORT INFORMATION
  Report Type: 
  Country: None (occurrence: None)
  Receive Date: 20111213
  Receipt Date: 20110627
  Transmission Date: 20120403
  Serious: No
  Sender: FDA-Public Use
  Company Number: 2011SP029911

PATIENT
  Age: 35 Year
  Sex: Female
  Weight: 108.8633 kg

DRUGS (3)
  1. SAPHRIS [Suspect]
     Indication: SCHIZOAFFECTIVE DISORDER
     Dosage: 10 MG;BID;SL
     Route: 060
     Dates: start: 20100203
  2. TRAZODONE HCL [Concomitant]
  3. ZOLOFT [Concomitant]

REACTIONS (3)
  - CYSTITIS [None]
  - MENSTRUAL DISORDER [None]
  - MATERNAL EXPOSURE DURING PREGNANCY [None]
